FAERS Safety Report 5669887-9 (Version None)
Quarter: 2008Q1

REPORT INFORMATION
  Report Type: 
  Country: None (occurrence: None)
  Receive Date: 20080317
  Receipt Date: 20080305
  Transmission Date: 20080703
  Serious: Yes (Other)
  Sender: FDA-Public Use
  Company Number: US-PFIZER INC-2008021851

PATIENT
  Sex: Female
  Weight: 70.454 kg

DRUGS (4)
  1. CHANTIX [Suspect]
     Indication: EX-SMOKER
     Route: 048
     Dates: start: 20080101, end: 20080215
  2. SYNTHROID [Concomitant]
  3. ATIVAN [Concomitant]
  4. ATENOLOL [Concomitant]

REACTIONS (5)
  - ABNORMAL DREAMS [None]
  - AGITATION [None]
  - ANXIETY [None]
  - DEPRESSION [None]
  - PARANOIA [None]
